FAERS Safety Report 6968779-2 (Version None)
Quarter: 2010Q3

REPORT INFORMATION
  Report Type: 
  Country: None (occurrence: None)
  Receive Date: 20100907
  Receipt Date: 20100827
  Transmission Date: 20110219
  Serious: Yes (Other)
  Sender: FDA-Public Use
  Company Number: PHHY2010BR57677

PATIENT
  Sex: Male

DRUGS (1)
  1. LEPONEX [Suspect]
     Dosage: 25 MG, UNK

REACTIONS (3)
  - DIZZINESS [None]
  - GAIT DISTURBANCE [None]
  - LABYRINTHITIS [None]
